FAERS Safety Report 8711001 (Version 2)
Quarter: 2012Q4

REPORT INFORMATION
  Report Type: 
  Country: US (occurrence: US)
  Receive Date: 20120807
  Receipt Date: 20120918
  Transmission Date: 20130627
  Serious: Yes (Hospitalization)
  Sender: FDA-Public Use
  Company Number: US-CELGENEUS-163-21880-12073305

PATIENT
  Age: 77 Year
  Sex: Female

DRUGS (2)
  1. REVLIMID [Suspect]
     Indication: MULTIPLE MYELOMA
     Dosage: 10 Milligram
     Route: 048
     Dates: start: 20120208, end: 201207
  2. REVLIMID [Suspect]
     Dosage: 3.75 Milligram
     Route: 048
     Dates: start: 201205

REACTIONS (2)
  - Chest pain [Unknown]
  - Arthralgia [Recovering/Resolving]
